FAERS Safety Report 7329301-4 (Version None)
Quarter: 2011Q1

REPORT INFORMATION
  Report Type: 
  Country: None (occurrence: None)
  Receive Date: 20110303
  Receipt Date: 20110222
  Transmission Date: 20110831
  Serious: Yes (Death)
  Sender: FDA-Public Use
  Company Number: B0703044A

PATIENT
  Age: 50 Year
  Sex: Male
  Weight: 67.7 kg

DRUGS (5)
  1. MARAVIROC [Suspect]
     Indication: HIV INFECTION
     Dosage: 150MG TWICE PER DAY
     Dates: start: 20090413
  2. NORVIR [Suspect]
     Dosage: 100MG TWICE PER DAY
     Dates: start: 20090413
  3. EMTRIVA [Suspect]
     Dosage: 200MG PER DAY
     Dates: start: 20090413
  4. ETRAVIRINE [Suspect]
     Dosage: 400MG TWICE PER DAY
     Dates: start: 20090413
  5. PREZISTA [Suspect]
     Dosage: 1200MG TWICE PER DAY
     Dates: start: 20090413

REACTIONS (1)
  - PANCREATIC CARCINOMA [None]
